FAERS Safety Report 8804937 (Version 1)
Quarter: 2012Q4

REPORT INFORMATION
  Report Type: Report from Study
  Country: US (occurrence: US)
  Receive Date: 20120924
  Receipt Date: 20120924
  Transmission Date: 20130627
  Serious: Yes (Other)
  Sender: FDA-Public Use
  Company Number: US-US-EMD SERONO, INC.-7162009

PATIENT
  Age: 42 Year
  Sex: Female

DRUGS (1)
  1. REBIF [Suspect]
     Indication: PRODUCT USED FOR UNKNOWN INDICATION
     Route: 058
     Dates: start: 20120716

REACTIONS (7)
  - Uhthoff^s phenomenon [Unknown]
  - Injection site pain [Unknown]
  - Injection site erythema [Unknown]
  - Injection site bruising [Unknown]
  - Headache [Unknown]
  - Depression [Unknown]
  - Pain [Unknown]
